FAERS Safety Report 8011685-5 (Version None)
Quarter: 2011Q4

REPORT INFORMATION
  Report Type: 
  Country: None (occurrence: None)
  Receive Date: 20111228
  Receipt Date: 20111221
  Transmission Date: 20120403
  Serious: Yes (Other)
  Sender: FDA-Public Use
  Company Number: US-US-EMD SERONO, INC.-7101541

PATIENT
  Sex: Female
  Weight: 82 kg

DRUGS (6)
  1. ATENOLOL [Concomitant]
     Route: 048
  2. LOSARTAN POTASSIUM [Concomitant]
     Route: 048
  3. LAMICTAL [Suspect]
  4. REBIF [Suspect]
     Indication: MULTIPLE SCLEROSIS
     Route: 058
     Dates: start: 20040707, end: 20100701
  5. JANUMET [Concomitant]
     Route: 048
  6. PRAVASTATIN [Concomitant]
     Route: 048

REACTIONS (1)
  - HEPATITIS [None]
